FAERS Safety Report 5767343-0 (Version None)
Quarter: 2008Q2

REPORT INFORMATION
  Report Type: 
  Country: None (occurrence: None)
  Receive Date: 20080612
  Receipt Date: 20080604
  Transmission Date: 20081010
  Serious: Yes (Other)
  Sender: FDA-Public Use
  Company Number: A0728304A

PATIENT
  Age: 2 Year
  Sex: Female

DRUGS (3)
  1. FLOVENT [Suspect]
     Indication: ASTHMA
     Dosage: 44MCG TWICE PER DAY
     Route: 055
  2. ANTIHISTAMINE [Concomitant]
  3. VENTOLIN [Concomitant]

REACTIONS (5)
  - ASTHMA [None]
  - COUGH [None]
  - LOWER RESPIRATORY TRACT INFECTION [None]
  - PHARMACEUTICAL PRODUCT COMPLAINT [None]
  - WHEEZING [None]
